FAERS Safety Report 6173562-4 (Version None)
Quarter: 2009Q2

REPORT INFORMATION
  Report Type: 
  Country: None (occurrence: None)
  Receive Date: 20090430
  Receipt Date: 20090421
  Transmission Date: 20091009
  Serious: Yes (Other)
  Sender: FDA-Public Use
  Company Number: B0572180A

PATIENT
  Age: 20 Year
  Sex: Male

DRUGS (1)
  1. MALARONE [Suspect]
     Indication: MALARIA PROPHYLAXIS
     Route: 048
     Dates: start: 20060726, end: 20060727

REACTIONS (3)
  - DYSARTHRIA [None]
  - PARAESTHESIA ORAL [None]
  - SWOLLEN TONGUE [None]
